FAERS Safety Report 17023648 (Version 19)
Quarter: 2021Q1

REPORT INFORMATION
  Report Type: Report from Study
  Country: BR (occurrence: BR)
  Receive Date: 20191113
  Receipt Date: 20210218
  Transmission Date: 20210419
  Serious: Yes (Life-Threatening, Hospitalization)
  Sender: FDA-Public Use
  Company Number: BR-ROCHE-2469077

PATIENT
  Age: 47 Year
  Sex: Female
  Weight: 90.35 kg

DRUGS (69)
  1. OCRELIZUMAB. [Suspect]
     Active Substance: OCRELIZUMAB
     Dosage: INFUSION COMPLETED WITHOUT INTERVENTION
     Route: 042
     Dates: start: 20141125, end: 20141125
  2. OCRELIZUMAB. [Suspect]
     Active Substance: OCRELIZUMAB
     Dosage: INFUSION COMPLETED WITHOUT INTERVENTION
     Route: 042
     Dates: start: 20160405, end: 20160405
  3. GLUCOSAMINE AND CHONDROITIN [Concomitant]
     Active Substance: CHONDROITIN SULFATE (BOVINE)\GLUCOSAMINE HYDROCHLORIDE
     Indication: PAIN
     Dosage: 1 UNITS
     Dates: start: 20160622
  4. METHYLPREDNISOLONE. [Concomitant]
     Active Substance: METHYLPREDNISOLONE
     Dosage: (WEEK 2 TO WEEK 240) 24/JAN/2013, 13/JUN/2013, 19/NOV/2013, 22/MAY/2014, 13/NOV/2014, 25/NOV/2014, 3
     Dates: start: 20121220
  5. PEMBROLIZUMAB. [Concomitant]
     Active Substance: PEMBROLIZUMAB
     Indication: PROGRESSIVE MULTIFOCAL LEUKOENCEPHALOPATHY
     Dates: start: 20191111, end: 20191111
  6. OCRELIZUMAB. [Suspect]
     Active Substance: OCRELIZUMAB
     Dosage: INFUSION COMPLETED WITHOUT INTERVENTION
     Route: 042
     Dates: start: 20131119, end: 20131119
  7. OCRELIZUMAB. [Suspect]
     Active Substance: OCRELIZUMAB
     Dosage: INFUSION COMPLETED WITHOUT INTERVENTION
     Route: 042
     Dates: start: 20140522, end: 20140522
  8. OCRELIZUMAB. [Suspect]
     Active Substance: OCRELIZUMAB
     Dosage: INFUSION COMPLETED WITHOUT INTERVENTION
     Route: 042
     Dates: start: 20151020, end: 20151020
  9. OCRELIZUMAB. [Suspect]
     Active Substance: OCRELIZUMAB
     Dosage: INFUSION COMPLETED WITHOUT INTERVENTION
     Route: 042
     Dates: start: 20180810, end: 20180810
  10. HIGROTON [Concomitant]
     Active Substance: CHLORTHALIDONE
     Indication: HYPERTENSION
     Dates: start: 20170110
  11. OLANZAPINE. [Concomitant]
     Active Substance: OLANZAPINE
     Dates: start: 20191108, end: 20191109
  12. CHLORPROMAZINE. [Concomitant]
     Active Substance: CHLORPROMAZINE
     Dates: start: 20191111, end: 20191112
  13. AMPICILLIN [Concomitant]
     Active Substance: AMPICILLIN
     Dates: start: 20191112, end: 20191117
  14. MONURIL [Concomitant]
     Active Substance: FOSFOMYCIN TROMETHAMINE
     Indication: URINARY TRACT INFECTION
     Dates: start: 20200422, end: 20200422
  15. DEXAMETHASONE. [Concomitant]
     Active Substance: DEXAMETHASONE
     Indication: DERMATITIS CONTACT
     Dates: start: 20201127, end: 20201202
  16. BACITRACIN ZINC. [Concomitant]
     Active Substance: BACITRACIN ZINC
     Indication: INGROWING NAIL
     Dates: start: 20201015, end: 20201018
  17. ONDANSETRON [Concomitant]
     Active Substance: ONDANSETRON
     Dosage: 1 AMPULE
     Dates: start: 20191201, end: 20191210
  18. CHLORPROMAZINE. [Concomitant]
     Active Substance: CHLORPROMAZINE
     Dosage: 03/DEC/2019 TO 03/DEC/2019: 40 MG AND 01/DEC/2019 TO 01/DEC/2019: 40 MG
     Dates: start: 20191109, end: 20191109
  19. NEBACETIN [Concomitant]
     Active Substance: BACITRACIN ZINC\NEOMYCIN SULFATE
     Dates: start: 20201015, end: 20201018
  20. OCRELIZUMAB. [Suspect]
     Active Substance: OCRELIZUMAB
     Indication: RELAPSING-REMITTING MULTIPLE SCLEROSIS
     Dosage: INFUSION WAS INTERRUPTED DUE TO INFUSION RELATED REACTION
     Route: 042
     Dates: start: 20121220, end: 20121220
  21. OCRELIZUMAB. [Suspect]
     Active Substance: OCRELIZUMAB
     Dosage: INFUSION COMPLETED WITHOUT INTERVENTION
     Route: 042
     Dates: start: 20130124, end: 20130124
  22. ONDANSETRON [Concomitant]
     Active Substance: ONDANSETRON
     Indication: NAUSEA
     Dosage: 1 AMPULE
     Dates: start: 20191108, end: 20191121
  23. MIRTAZAPINE. [Concomitant]
     Active Substance: MIRTAZAPINE
     Dates: start: 20191109, end: 20191210
  24. GABALON [Concomitant]
     Active Substance: BACLOFEN
     Dosage: 1 TABLET
     Dates: start: 20191110, end: 20191210
  25. ENOXAPARIN [Concomitant]
     Active Substance: ENOXAPARIN
     Dates: start: 20191202, end: 20191209
  26. CARBAMAZEPINE. [Concomitant]
     Active Substance: CARBAMAZEPINE
     Dosage: FROM 23/SEP/2019 TO 04/NOV/2019: 400 MG
     Dates: start: 20190820, end: 20190922
  27. KETOCONAZOLE. [Concomitant]
     Active Substance: KETOCONAZOLE
     Indication: SKIN INJURY
     Dates: start: 20200118, end: 20200119
  28. CEPHALEXIN. [Concomitant]
     Active Substance: CEPHALEXIN
     Dates: start: 20200516, end: 20200520
  29. MEROPENEN [Concomitant]
     Indication: URINARY TRACT INFECTION
     Dates: start: 20200610
  30. PLACEBO [Suspect]
     Active Substance: UNSPECIFIED INGREDIENT
     Route: 058
     Dates: start: 20141024, end: 20141110
  31. OCRELIZUMAB. [Suspect]
     Active Substance: OCRELIZUMAB
     Dosage: INFUSION COMPLETED WITHOUT INTERVENTION
     Route: 042
     Dates: start: 20170822, end: 20170822
  32. DROSPIRENONE [Concomitant]
     Active Substance: DROSPIRENONE
     Indication: OVARIAN CYST
     Dates: start: 20140425, end: 20140515
  33. DRAMIN [Concomitant]
     Active Substance: DIMENHYDRINATE
     Dosage: FOR SLEEP INDUCTION
     Dates: start: 20130206
  34. PROMETAZINA [Concomitant]
     Dosage: (WEEK 24 TO WEEK 240) 13/JUN/2013, 19/NOV/2013, 22/MAY/2014, 13/NOV/2014, 25/NOV/2014, 30/APR/2015,
     Dates: start: 20130124
  35. AMPICILLIN;SULBACTAM [Concomitant]
     Active Substance: AMPICILLIN SODIUM\SULBACTAM SODIUM
     Indication: PNEUMONIA
     Dates: start: 20191112, end: 20191117
  36. NYSTATIN. [Concomitant]
     Active Substance: NYSTATIN
  37. SODIUM VALPROATE [Concomitant]
     Active Substance: VALPROATE SODIUM
     Indication: MYOCLONIC EPILEPSY
     Dates: start: 20200728, end: 20200902
  38. AMOXICILLIN. [Concomitant]
     Active Substance: AMOXICILLIN
     Indication: DENTAL IMPLANTATION
     Dates: start: 20150624, end: 20150628
  39. LACTULOSE. [Concomitant]
     Active Substance: LACTULOSE
     Indication: CONSTIPATION
     Dates: start: 20191106, end: 20191106
  40. PLACEBO [Suspect]
     Active Substance: UNSPECIFIED INGREDIENT
     Indication: RELAPSING-REMITTING MULTIPLE SCLEROSIS
     Route: 058
     Dates: start: 20121220, end: 20121220
  41. OCRELIZUMAB. [Suspect]
     Active Substance: OCRELIZUMAB
     Dosage: INFUSION COMPLETED WITHOUT INTERVENTION
     Route: 042
     Dates: start: 20150430, end: 20150430
  42. SYNTHROID [Concomitant]
     Active Substance: LEVOTHYROXINE SODIUM
     Indication: HYPOTHYROIDISM
     Dates: start: 201206
  43. VITAMIN C [Concomitant]
     Active Substance: ASCORBIC ACID
     Dates: start: 20191110, end: 20191121
  44. TAZOCIN [Concomitant]
     Active Substance: PIPERACILLIN SODIUM\TAZOBACTAM SODIUM
     Indication: PNEUMONIA
     Dates: start: 20191201, end: 20191207
  45. RANITIDINE. [Concomitant]
     Active Substance: RANITIDINE
     Indication: GASTROINTESTINAL DISORDER PROPHYLAXIS
     Dates: start: 20191202, end: 20191208
  46. NEOMYCIN SULPHATE [Concomitant]
     Active Substance: NEOMYCIN SULFATE
     Indication: INGROWING NAIL
     Dates: start: 20201015, end: 20201018
  47. PROMETHAZINE [Concomitant]
     Active Substance: PROMETHAZINE HYDROCHLORIDE
     Dosage: 1 AMPULE
     Dates: start: 20191107, end: 20191107
  48. HALOPERIDOL. [Concomitant]
     Active Substance: HALOPERIDOL
     Dates: start: 20191025, end: 20191025
  49. OCRELIZUMAB. [Suspect]
     Active Substance: OCRELIZUMAB
     Dosage: INFUSION COMPLETED WITHOUT INTERVENTION
     Route: 042
     Dates: start: 20130613, end: 20130613
  50. OCRELIZUMAB. [Suspect]
     Active Substance: OCRELIZUMAB
     Dosage: INFUSION COMPLETED WITHOUT INTERVENTION
     Route: 042
     Dates: start: 20160923, end: 20160923
  51. OCRELIZUMAB. [Suspect]
     Active Substance: OCRELIZUMAB
     Dosage: INFUSION COMPLETED WITHOUT INTERVENTION
     Route: 042
     Dates: start: 20180206, end: 20180206
  52. OCRELIZUMAB. [Suspect]
     Active Substance: OCRELIZUMAB
     Dosage: INFUSION COMPLETED WITHOUT INTERVENTION
     Route: 042
     Dates: start: 20190125, end: 20190125
  53. ENOXAPARIN [Concomitant]
     Active Substance: ENOXAPARIN
     Dates: start: 20191108, end: 20191121
  54. QUETIAPINE. [Concomitant]
     Active Substance: QUETIAPINE
     Indication: PSYCHOMOTOR HYPERACTIVITY
     Dates: start: 20191208, end: 20191210
  55. CLONAZEPAM. [Concomitant]
     Active Substance: CLONAZEPAM
     Dates: start: 20191203, end: 20191203
  56. SODIUM VALPROATE [Concomitant]
     Active Substance: VALPROATE SODIUM
     Dates: start: 20200903
  57. BUSCOPAN [Concomitant]
     Active Substance: BUTYLSCOPOLAMINE BROMIDE
     Indication: SALIVARY HYPERSECRETION
     Dates: start: 20200902
  58. OCRELIZUMAB. [Suspect]
     Active Substance: OCRELIZUMAB
     Indication: RELAPSING-REMITTING MULTIPLE SCLEROSIS
     Dosage: INFUSION COMPLETED WITHOUT INTERVENTION
     Route: 042
     Dates: start: 20141113, end: 20141113
  59. OCRELIZUMAB. [Suspect]
     Active Substance: OCRELIZUMAB
     Dosage: INFUSION COMPLETED WITHOUT INTERVENTION
     Route: 042
     Dates: start: 20170307, end: 20170307
  60. OCRELIZUMAB. [Suspect]
     Active Substance: OCRELIZUMAB
     Dosage: INFUSION COMPLETED WITHOUT INTERVENTION
     Route: 042
     Dates: start: 20190731, end: 20190731
  61. PARACETAMOL [Concomitant]
     Active Substance: ACETAMINOPHEN
     Indication: PAIN
     Dosage: (WEEK 0 TO WEEK 240) 13/NOV/2014, 25/NOV/2014, 30/APR/2015, 20/OCT/2015, 04/APR/2016, 05/APR/2016, 2
     Dates: start: 20140522
  62. PEMBROLIZUMAB. [Concomitant]
     Active Substance: PEMBROLIZUMAB
     Dates: start: 20191211, end: 20191211
  63. PEMBROLIZUMAB. [Concomitant]
     Active Substance: PEMBROLIZUMAB
     Dates: start: 20200117, end: 20200118
  64. CHLORPROMAZINE. [Concomitant]
     Active Substance: CHLORPROMAZINE
     Dosage: 10 DROPS
     Dates: start: 20191113, end: 20191113
  65. BOTULINUM TOXIN TYPE A [Concomitant]
     Active Substance: BOTULINUM TOXIN TYPE A
     Dates: start: 20190829, end: 20190829
  66. CEPHALEXIN. [Concomitant]
     Active Substance: CEPHALEXIN
     Indication: PNEUMONIA
     Dates: start: 20200511, end: 20200515
  67. AMOXICILLIN. [Concomitant]
     Active Substance: AMOXICILLIN
     Indication: URINARY TRACT INFECTION
     Dates: start: 20200808, end: 20200814
  68. TOBRAMYCIN. [Concomitant]
     Active Substance: TOBRAMYCIN
     Indication: CONJUNCTIVITIS
     Dates: start: 20191105, end: 20191108
  69. PROMETHAZINE [Concomitant]
     Active Substance: PROMETHAZINE HYDROCHLORIDE
     Indication: HYPERSENSITIVITY
     Dates: start: 20121220, end: 20121220

REACTIONS (1)
  - Encephalitis [Not Recovered/Not Resolved]

NARRATIVE: CASE EVENT DATE: 201906
